FAERS Safety Report 17579233 (Version 1)
Quarter: 2020Q1

REPORT INFORMATION
  Report Type: Spontaneous
  Country: DK (occurrence: DK)
  Receive Date: 20200325
  Receipt Date: 20200325
  Transmission Date: 20200409
  Serious: Yes (Hospitalization)
  Sender: FDA-Public Use
  Company Number: DK-BRISTOL-MYERS SQUIBB COMPANY-BMS-2020-024017

PATIENT
  Age: 81 Year
  Sex: Female

DRUGS (17)
  1. HJERTEMAGNYL [ACETYLSALICYLIC ACID] [Suspect]
     Active Substance: ASPIRIN
     Indication: THROMBOSIS PROPHYLAXIS
     Dosage: 75MILLIGRAM, DAILY
     Route: 048
     Dates: start: 20110714, end: 20200225
  2. METOPROLOL. [Concomitant]
     Active Substance: METOPROLOL
     Indication: HYPERTENSION
     Dosage: 50 MILLIGRAM DAILY
     Route: 048
     Dates: start: 20131105
  3. FUROSEMIDE. [Concomitant]
     Active Substance: FUROSEMIDE
     Indication: RENAL FAILURE
     Dosage: 125 MILLIGRAM DAILY
     Route: 048
     Dates: start: 20170815
  4. ELTROXIN [Concomitant]
     Active Substance: LEVOTHYROXINE
     Indication: HYPOTHYROIDISM
     Dosage: 1 DOSAGE FORM DAILY
     Route: 048
     Dates: start: 20131105
  5. POTASSIUM CHLORIDE. [Concomitant]
     Active Substance: POTASSIUM CHLORIDE
     Indication: MINERAL SUPPLEMENTATION
     Dosage: 1500 MILLIGRAM DAILY
     Route: 048
     Dates: start: 20191227
  6. BENFEROL [Concomitant]
     Indication: VITAMIN D DEFICIENCY
     Dosage: 1.25 MILLIGRAM, QMO
     Route: 048
     Dates: start: 20191201
  7. ELIQUIS [Suspect]
     Active Substance: APIXABAN
     Indication: THROMBOSIS PROPHYLAXIS
     Dosage: 5 MILLIGRAM DAILY
     Route: 048
     Dates: start: 20200212, end: 20200225
  8. TRESIBA [Concomitant]
     Active Substance: INSULIN DEGLUDEC
     Indication: TYPE 2 DIABETES MELLITUS
     Dosage: 10 INTERNATIONAL UNIT DAILY
     Route: 058
     Dates: start: 20160208
  9. ATORVASTATIN [Concomitant]
     Active Substance: ATORVASTATIN
     Indication: HYPERCHOLESTEROLAEMIA
     Dosage: 80 MILLIGRAM DAILY
     Route: 048
     Dates: start: 20120906
  10. TRAMADOL. [Concomitant]
     Active Substance: TRAMADOL
     Indication: PAIN
     Dosage: 50 MILLIGRAM
     Route: 048
     Dates: start: 20200217
  11. TRAJENTA [Concomitant]
     Active Substance: LINAGLIPTIN
     Indication: TYPE 2 DIABETES MELLITUS
     Dosage: 5 MILLIGRAM DAILY
     Route: 048
     Dates: start: 20170720
  12. PARACETAMOL [Concomitant]
     Active Substance: ACETAMINOPHEN
     Indication: PAIN
     Dosage: 1000 MILLIGRAM AD NECESSARY
     Route: 048
     Dates: start: 20200213
  13. SODIUM CARBONATE [Concomitant]
     Active Substance: SODIUM CARBONATE
     Indication: ACID BASE BALANCE ABNORMAL
     Dosage: 2000 MILLIGRAM DAILY
     Route: 048
     Dates: start: 20191112
  14. SEVELAMER [Concomitant]
     Active Substance: SEVELAMER
     Indication: HYPERPHOSPHATAEMIA
     Dosage: 2400 MILLIGRAM DAILY
     Route: 048
     Dates: start: 20190219
  15. ALFACALCIDOL [Concomitant]
     Active Substance: ALFACALCIDOL
     Indication: CALCIUM METABOLISM DISORDER
     Dosage: 1 MICROGRAM, DAILY
     Route: 048
     Dates: start: 20170221
  16. ALLOPURINOL. [Concomitant]
     Active Substance: ALLOPURINOL
     Indication: GOUT
     Dosage: 100 MILLIGRAM DAILY
     Route: 048
     Dates: start: 20150120
  17. ZOPICLONE [Concomitant]
     Active Substance: ZOPICLONE
     Indication: INSOMNIA
     Dosage: 3.75 MILLIGRAM
     Route: 048
     Dates: start: 20200218

REACTIONS (2)
  - Haemoglobin decreased [Recovered/Resolved]
  - Epistaxis [Recovered/Resolved]

NARRATIVE: CASE EVENT DATE: 202002
